FAERS Safety Report 16136714 (Version 2)
Quarter: 2020Q3

REPORT INFORMATION
  Report Type: Report from Study
  Country: US (occurrence: US)
  Receive Date: 20190401
  Receipt Date: 20200716
  Transmission Date: 20201102
  Serious: Yes (Hospitalization)
  Sender: FDA-Public Use
  Company Number: US-ACADIA PHARMACEUTICALS INC.-ACA-2019-012369

PATIENT
  Sex: Female

DRUGS (4)
  1. NUPLAZID [Suspect]
     Active Substance: PIMAVANSERIN TARTRATE
     Indication: DEMENTIA
     Dosage: 34 MG, QD
     Route: 048
     Dates: start: 201811
  2. IRON [Suspect]
     Active Substance: IRON
     Indication: SUPPLEMENTATION THERAPY
  3. NORTHERA [Concomitant]
     Active Substance: DROXIDOPA
     Indication: PRODUCT USED FOR UNKNOWN INDICATION
     Dosage: 2 CAPSULES IN AM, 2 CS AT 1 PM, 1 CS WITH ONE 100MG CS AT 5 PM, LAST DOSE 3 HRS BEFORE BED
     Route: 048
  4. NUPLAZID [Suspect]
     Active Substance: PIMAVANSERIN TARTRATE
     Indication: PARKINSON^S DISEASE

REACTIONS (2)
  - Hospitalisation [Unknown]
  - Abnormal behaviour [Unknown]
